FAERS Safety Report 19207217 (Version 1)
Quarter: 2021Q2

REPORT INFORMATION
  Report Type: Spontaneous
  Country: US (occurrence: US)
  Receive Date: 20210501
  Receipt Date: 20210501
  Transmission Date: 20210717
  Serious: No
  Sender: FDA-Public Use
  Company Number: US-IGSA-BIG0014228

PATIENT
  Age: 36 Year

DRUGS (15)
  1. BANOPHEN [Concomitant]
     Active Substance: DIPHENHYDRAMINE HYDROCHLORIDE
  2. HEPARIN [Concomitant]
     Active Substance: HEPARIN SODIUM
  3. AMBIEN [Concomitant]
     Active Substance: ZOLPIDEM TARTRATE
  4. GLATOPA [Concomitant]
     Active Substance: GLATIRAMER ACETATE
  5. GAMUNEX?C [Suspect]
     Active Substance: HUMAN IMMUNOGLOBULIN G
     Indication: MULTIPLE SCLEROSIS
     Dosage: 250 MILLILITER, Q.4WK.
     Route: 042
     Dates: start: 20210416
  6. GAMUNEX?C [Suspect]
     Active Substance: HUMAN IMMUNOGLOBULIN G
     Dosage: UNK
     Route: 042
  7. NORMAL SALINE [Concomitant]
     Active Substance: SODIUM CHLORIDE
  8. ACETAMINOPHEN. [Concomitant]
     Active Substance: ACETAMINOPHEN
  9. AUBAGIO [Concomitant]
     Active Substance: TERIFLUNOMIDE
  10. IVIGLOB EX [Concomitant]
     Active Substance: HUMAN IMMUNOGLOBULIN G
  11. EPINEPHRINE. [Concomitant]
     Active Substance: EPINEPHRINE
  12. PRIVIGEN [Concomitant]
     Active Substance: HUMAN IMMUNOGLOBULIN G
  13. TECFIDERA [Concomitant]
     Active Substance: DIMETHYL FUMARATE
  14. LODINE [Concomitant]
     Active Substance: ETODOLAC
  15. CONTRACEPTIVE HD [Concomitant]
     Route: 048

REACTIONS (2)
  - Rash [Recovered/Resolved]
  - Urticaria [Recovered/Resolved]

NARRATIVE: CASE EVENT DATE: 20210416
